FAERS Safety Report 24332647 (Version 1)
Quarter: 2024Q3

REPORT INFORMATION
  Report Type: Spontaneous
  Country: CA (occurrence: CA)
  Receive Date: 20240918
  Receipt Date: 20240918
  Transmission Date: 20241016
  Serious: Yes (Other)
  Sender: ROCHE
  Company Number: CA-ROCHE-10000076960

PATIENT
  Age: 32 Year
  Sex: Male

DRUGS (1)
  1. BEVACIZUMAB [Suspect]
     Active Substance: BEVACIZUMAB
     Indication: Exudative retinopathy
     Route: 065

REACTIONS (5)
  - Drug effective for unapproved indication [Recovering/Resolving]
  - Tractional retinal detachment [Recovering/Resolving]
  - Off label use [Unknown]
  - Retinal tear [Recovering/Resolving]
  - Serous retinal detachment [Recovering/Resolving]
